FAERS Safety Report 23821797 (Version 1)
Quarter: 2024Q2

REPORT INFORMATION
  Report Type: Spontaneous
  Country: DE (occurrence: DE)
  Receive Date: 20240506
  Receipt Date: 20240506
  Transmission Date: 20240716
  Serious: Yes (Hospitalization, Other)
  Sender: FDA-Public Use
  Company Number: DE-002147023-NVSC2024DE073045

PATIENT
  Sex: Male
  Weight: 76 kg

DRUGS (2)
  1. TABRECTA [Suspect]
     Active Substance: CAPMATINIB
     Indication: Lung neoplasm malignant
     Dosage: 4 DOSAGE FORM, QD (DAILY)
     Route: 048
  2. TABRECTA [Suspect]
     Active Substance: CAPMATINIB
     Dosage: 4 DOSAGE FORM, QD (DAILY)
     Route: 048

REACTIONS (8)
  - Mucosal induration [Unknown]
  - Mucosal inflammation [Unknown]
  - Oedema mucosal [Unknown]
  - Ulcer [Unknown]
  - Oesophageal obstruction [Not Recovered/Not Resolved]
  - Product use complaint [Not Recovered/Not Resolved]
  - Throat irritation [Unknown]
  - Wrong technique in product usage process [Unknown]
